FAERS Safety Report 16699900 (Version 1)
Quarter: 2019Q3

REPORT INFORMATION
  Report Type: Spontaneous
  Country: US (occurrence: US)
  Receive Date: 20190813
  Receipt Date: 20190813
  Transmission Date: 20191004
  Serious: Yes (Congenital Anomaly, Other)
  Sender: FDA-Public Use
  Company Number: US-ALLERGAN-1932848US

PATIENT

DRUGS (5)
  1. LAMICTAL [Concomitant]
     Active Substance: LAMOTRIGINE
     Route: 064
  2. LITHIUM. [Concomitant]
     Active Substance: LITHIUM
     Route: 064
  3. CLONIDINE. [Concomitant]
     Active Substance: CLONIDINE
     Route: 064
  4. VRAYLAR [Suspect]
     Active Substance: CARIPRAZINE
     Indication: BIPOLAR DISORDER
     Dosage: 1.5 MG, Q WEEK
     Route: 064
     Dates: start: 201712
  5. AMBIEN [Concomitant]
     Active Substance: ZOLPIDEM TARTRATE
     Route: 064

REACTIONS (1)
  - Spina bifida [Unknown]
